FAERS Safety Report 5342812-6 (Version None)
Quarter: 2007Q2

REPORT INFORMATION
  Report Type: 
  Country: None (occurrence: None)
  Receive Date: 20070601
  Receipt Date: 20070528
  Transmission Date: 20071010
  Serious: Yes (Other)
  Sender: FDA-Public Use
  Company Number: JP-MERCK-0705USA03365

PATIENT

DRUGS (1)
  1. PRIMAXIN [Suspect]
     Route: 041

REACTIONS (4)
  - CONVULSION [None]
  - ENCEPHALITIS [None]
  - GRAND MAL CONVULSION [None]
  - LOSS OF CONSCIOUSNESS [None]
